FAERS Safety Report 8597407-8 (Version None)
Quarter: 2012Q3

REPORT INFORMATION
  Report Type: 
  Country: None (occurrence: None)
  Receive Date: 20120801
  Receipt Date: 20120717
  Transmission Date: 20120928
  Serious: Yes (Other)
  Sender: FDA-Public Use
  Company Number: ENT 2012-0089

PATIENT
  Age: 54 Year
  Sex: Male

DRUGS (3)
  1. L-DOPA (LEVODOPA) [Suspect]
     Indication: PARKINSON'S DISEASE
     Dosage: 200 MG/DAY
  2. ENTACAPONE [Suspect]
     Indication: PARKINSON'S DISEASE
     Dosage: 800 MG/DAY
  3. PRAMIPEXOLE DIHYDROCHLORIDE [Suspect]
     Indication: PARKINSON'S DISEASE
     Dosage: 2.1 MG/DAY TAPERED DOWN TO 1.4 MG/DAY

REACTIONS (4)
  - MOOD SWINGS [None]
  - PATHOLOGICAL GAMBLING [None]
  - ANXIETY [None]
  - MARITAL PROBLEM [None]
